FAERS Safety Report 18926453 (Version 1)
Quarter: 2021Q1

REPORT INFORMATION
  Report Type: Spontaneous
  Country: US (occurrence: US)
  Receive Date: 20210223
  Receipt Date: 20210223
  Transmission Date: 20210420
  Serious: No
  Sender: FDA-Public Use
  Company Number: US-AKCEA THERAPEUTICS-2020IS001554

PATIENT
  Sex: Male

DRUGS (2)
  1. ISSD (INTEGRATED SYRINGE SAFETY DEVICE) [Suspect]
     Active Substance: DEVICE
  2. TEGSEDI [Suspect]
     Active Substance: INOTERSEN SODIUM
     Indication: PRODUCT USED FOR UNKNOWN INDICATION
     Route: 065
     Dates: start: 20190301

REACTIONS (6)
  - Platelet count decreased [Unknown]
  - Glomerular filtration rate decreased [Unknown]
  - Glucose urine present [Unknown]
  - Urine protein/creatinine ratio abnormal [Unknown]
  - Protein urine present [Unknown]
  - Blood creatinine increased [Unknown]
